FAERS Safety Report 26217356 (Version 1)
Quarter: 2025Q4

REPORT INFORMATION
  Report Type: Spontaneous
  Country: US (occurrence: None)
  Receive Date: 20251231
  Receipt Date: 20251231
  Transmission Date: 20260117
  Serious: Yes (Other)
  Sender: CHIESI
  Company Number: US-CHIESI-2025CHF09404

PATIENT
  Age: 70 Year
  Sex: Female

DRUGS (1)
  1. ELFABRIO [Suspect]
     Active Substance: PEGUNIGALSIDASE ALFA-IWXJ
     Indication: Fabry^s disease
     Dosage: UNK UNK, QOW
     Dates: end: 202511

REACTIONS (4)
  - Myocardial infarction [Unknown]
  - Chest pain [Recovered/Resolved]
  - Vein disorder [Unknown]
  - Fatigue [Unknown]

NARRATIVE: CASE EVENT DATE: 20251113
